FAERS Safety Report 8978850 (Version 1)
Quarter: 2012Q4

REPORT INFORMATION
  Report Type: Spontaneous
  Country: US (occurrence: None)
  Receive Date: 20121218
  Receipt Date: 20121218
  Transmission Date: 20130627
  Serious: Yes (Hospitalization)
  Sender: FDA-Public Use
  Company Number: None

PATIENT
  Age: 66 Year
  Sex: Male

DRUGS (8)
  1. VALPROIC ACID [Suspect]
     Indication: SEIZURES
     Dosage: 500 MG Q12HRS PO
     Route: 048
  2. QUETIAPINE [Suspect]
     Dosage: 75 MG QHS PO
     Route: 048
  3. KEPPRA [Concomitant]
  4. WARFARIN [Concomitant]
  5. FUROSEMIDE [Concomitant]
  6. FAMOTIDINE [Concomitant]
  7. ACETAMINOPHEN [Concomitant]
  8. ENALAPRIL [Concomitant]

REACTIONS (3)
  - Neutropenia [None]
  - Body temperature increased [None]
  - Cellulitis [None]
